FAERS Safety Report 23194210 (Version 2)
Quarter: 2023Q4

REPORT INFORMATION
  Report Type: Spontaneous
  Country: ES (occurrence: ES)
  Receive Date: 20231117
  Receipt Date: 20231206
  Transmission Date: 20240110
  Serious: Yes (Other)
  Sender: FDA-Public Use
  Company Number: ES-SA-2023SA345420

PATIENT
  Age: 60 Year
  Sex: Female

DRUGS (3)
  1. ENOXAPARIN SODIUM [Suspect]
     Active Substance: ENOXAPARIN SODIUM
     Dosage: 400 MG, BID
     Route: 058
     Dates: start: 20190117, end: 20190214
  2. ENOXAPARIN SODIUM [Suspect]
     Active Substance: ENOXAPARIN SODIUM
     Dosage: 400 MG, QD
     Route: 058
     Dates: start: 20190215
  3. PALBOCICLIB [Concomitant]
     Active Substance: PALBOCICLIB
     Indication: Breast cancer
     Dosage: (125 MG, 100 MG, OR 75 MG DAILY ORALLY FOR 3 WEEKS AND 1 WEEK OFF AS PER PRIOR PALBOCICLIB-BASED REG

REACTIONS (1)
  - Pulmonary embolism [Recovered/Resolved]

NARRATIVE: CASE EVENT DATE: 20190101
